FAERS Safety Report 21652344 (Version 2)
Quarter: 2023Q4

REPORT INFORMATION
  Report Type: Spontaneous
  Country: CN (occurrence: CN)
  Receive Date: 20221128
  Receipt Date: 20231006
  Transmission Date: 20240110
  Serious: Yes (Life-Threatening)
  Sender: FDA-Public Use
  Company Number: CN-BAYER-2022A164176

PATIENT
  Age: 58 Year
  Sex: Male

DRUGS (1)
  1. ULTRAVIST [Suspect]
     Active Substance: IOPROMIDE
     Dosage: 55 ML, ONCE
     Route: 042
     Dates: start: 20220609, end: 20220609

REACTIONS (6)
  - Unresponsive to stimuli [Recovering/Resolving]
  - Arrhythmia [None]
  - Blood pressure decreased [None]
  - Pruritus [None]
  - Erythema [Recovered/Resolved]
  - Reduced facial expression [None]

NARRATIVE: CASE EVENT DATE: 20220609
